FAERS Safety Report 9657007 (Version 3)
Quarter: 2013Q4

REPORT INFORMATION
  Report Type: Report from Study
  Country: US (occurrence: US)
  Receive Date: 20131030
  Receipt Date: 20131218
  Transmission Date: 20140711
  Serious: Yes (Hospitalization)
  Sender: FDA-Public Use
  Company Number: US-JNJFOC-20131014675

PATIENT
  Age: 12 Year
  Sex: Female
  Weight: 45.2 kg

DRUGS (39)
  1. REMICADE [Suspect]
     Indication: COLITIS ULCERATIVE
     Route: 042
     Dates: start: 20130501
  2. ACETAMINOPHEN [Concomitant]
     Route: 065
  3. BARIUM [Concomitant]
     Route: 065
  4. VANCOMYCIN [Concomitant]
     Route: 065
  5. CIPROFLOXACIN [Concomitant]
     Route: 065
  6. ERGOCALCIFEROL [Concomitant]
     Route: 065
  7. FENTANYL [Concomitant]
     Route: 065
  8. FERROUS SULFATE [Concomitant]
     Route: 065
  9. MULTIHANCE [Concomitant]
     Route: 065
  10. GLUCAGON [Concomitant]
     Route: 065
  11. PROBIOTICS [Concomitant]
     Route: 065
  12. LIDOCAINE [Concomitant]
     Route: 065
  13. PROTONIX [Concomitant]
     Route: 065
  14. ZANTAC [Concomitant]
     Route: 065
  15. HYDROCODONE [Concomitant]
     Route: 065
  16. NUBAIN [Concomitant]
     Route: 065
  17. ZOFRAN [Concomitant]
     Route: 065
  18. MYLICON [Concomitant]
     Route: 065
  19. MAGNESIUM CITRATE [Concomitant]
     Route: 065
  20. 5-ASA [Concomitant]
     Route: 048
  21. SENNOSIDE [Concomitant]
     Route: 065
  22. PHENERGAN [Concomitant]
     Route: 065
  23. SEVOFLURANE [Concomitant]
     Route: 065
  24. PROPOFOL [Concomitant]
     Route: 065
  25. ONDANSETRON [Concomitant]
     Route: 065
  26. LACTATED RINGERS [Concomitant]
     Route: 065
  27. ISOFLURANE [Concomitant]
     Route: 065
  28. DESFLURANE [Concomitant]
     Route: 065
  29. GLYCOPYRROLATE [Concomitant]
     Route: 065
  30. MIDAZOLAM [Concomitant]
     Route: 065
  31. NEOSTIGMINE [Concomitant]
     Route: 065
  32. ERTAPENEM [Concomitant]
     Route: 065
  33. HYDROMORPHONE [Concomitant]
     Route: 065
  34. BUPIVACAINE [Concomitant]
     Route: 065
  35. HEPARIN [Concomitant]
     Route: 065
  36. ROCURONIUM [Concomitant]
     Route: 065
  37. PLASMANATE [Concomitant]
     Route: 065
  38. NORMAL SALINE [Concomitant]
     Route: 065
  39. DEXTROSE+NACL+KCL [Concomitant]
     Route: 065

REACTIONS (1)
  - Henoch-Schonlein purpura [Recovered/Resolved with Sequelae]
